FAERS Safety Report 10643226 (Version 1)
Quarter: 2014Q4

REPORT INFORMATION
  Report Type: Spontaneous
  Country: US (occurrence: None)
  Receive Date: 20141121
  Receipt Date: 20141121
  Transmission Date: 20150529
  Serious: No
  Sender: FDA-Public Use
  Company Number: 163-10004-14070833

PATIENT
  Age: 64 Year
  Sex: Female
  Weight: 67.59 kg

DRUGS (6)
  1. LINZESS [Concomitant]
     Active Substance: LINACLOTIDE
  2. OXYCODONE (OXYCODONE) [Concomitant]
     Active Substance: OXYCODONE
  3. RESTERAL (SERTRALINE HYDROCHLORIDE) [Concomitant]
  4. OXYCONTIN [Concomitant]
     Active Substance: OXYCODONE HYDROCHLORIDE
  5. VITAMIN B [Concomitant]
     Active Substance: VITAMIN B
  6. OTEZLA [Suspect]
     Active Substance: APREMILAST
     Indication: PSORIATIC ARTHROPATHY
     Dosage: 2 IN 1 D
     Route: 048
     Dates: start: 20140624, end: 20140721

REACTIONS (5)
  - Alopecia [None]
  - Dysphagia [None]
  - Abdominal pain upper [None]
  - Nausea [None]
  - Headache [None]

NARRATIVE: CASE EVENT DATE: 20140625
